FAERS Safety Report 21283075 (Version 1)
Quarter: 2022Q3

REPORT INFORMATION
  Report Type: Report from Study
  Country: MX (occurrence: MX)
  Receive Date: 20220901
  Receipt Date: 20220901
  Transmission Date: 20221026
  Serious: Yes (Hospitalization)
  Sender: FDA-Public Use
  Company Number: MX-BAYER-2022A102643

PATIENT
  Age: 72 Year
  Sex: Male

DRUGS (6)
  1. XOFIGO [Suspect]
     Active Substance: RADIUM RA-223 DICHLORIDE
     Indication: Prostate cancer
     Dosage: 6 ML, Q4WK
     Route: 042
     Dates: start: 20220524, end: 20220524
  2. XOFIGO [Suspect]
     Active Substance: RADIUM RA-223 DICHLORIDE
     Indication: Prostate cancer
     Dosage: UNK
  3. XOFIGO [Suspect]
     Active Substance: RADIUM RA-223 DICHLORIDE
     Indication: Prostate cancer
     Dosage: UNK
  4. IRON POLYMALTOSE [Suspect]
     Active Substance: IRON POLYMALTOSE
     Indication: Iron deficiency
     Dosage: 200 MG, OM
     Route: 048
  5. ALGESTONE ACETOPHENIDE\ESTRADIOL ENANTHATE [Suspect]
     Active Substance: ALGESTONE ACETOPHENIDE\ESTRADIOL ENANTHATE
     Indication: Musculoskeletal disorder
     Dosage: 10 MG, BID
     Route: 048
  6. METOCLOPRAMIDE [Suspect]
     Active Substance: METOCLOPRAMIDE
     Indication: Nausea
     Dosage: 10 MG, PRN
     Route: 048

REACTIONS (3)
  - Surgery [Not Recovered/Not Resolved]
  - Infection [None]
  - Inappropriate schedule of product administration [Not Recovered/Not Resolved]

NARRATIVE: CASE EVENT DATE: 20220714
